FAERS Safety Report 18766323 (Version 1)
Quarter: 2021Q1

REPORT INFORMATION
  Report Type: Spontaneous
  Country: US (occurrence: US)
  Receive Date: 20210121
  Receipt Date: 20210121
  Transmission Date: 20210419
  Serious: Yes (Other)
  Sender: FDA-Public Use
  Company Number: US-ROCHE-2748919

PATIENT
  Age: 44 Year
  Sex: Female

DRUGS (1)
  1. OCREVUS [Suspect]
     Active Substance: OCRELIZUMAB
     Indication: PRODUCT USED FOR UNKNOWN INDICATION
     Route: 042
     Dates: start: 20200701

REACTIONS (5)
  - Back pain [Unknown]
  - Urinary incontinence [Unknown]
  - Fatigue [Unknown]
  - Muscle spasms [Unknown]
  - Tooth fracture [Unknown]

NARRATIVE: CASE EVENT DATE: 20200715
